FAERS Safety Report 4684465-6 (Version None)
Quarter: 2005Q2

REPORT INFORMATION
  Report Type: 
  Country: None (occurrence: None)
  Receive Date: 20050606
  Receipt Date: 20050527
  Transmission Date: 20051028
  Serious: Yes (Hospitalization)
  Sender: FDA-Public Use
  Company Number: 05-05-0951

PATIENT
  Age: 49 Year
  Weight: 75 kg

DRUGS (2)
  1. FUROSEMIDE [Suspect]
     Indication: HYPERTENSION
     Dosage: 40-160MG QD
  2. CAPTOPRIL [Concomitant]

REACTIONS (15)
  - BOWEL SOUNDS ABNORMAL [None]
  - COLITIS ISCHAEMIC [None]
  - COLONIC STENOSIS [None]
  - FATIGUE [None]
  - GENERAL PHYSICAL HEALTH DETERIORATION [None]
  - HYPERTROPHY [None]
  - INFECTION [None]
  - ISCHAEMIC ULCER [None]
  - LARGE INTESTINAL ULCER HAEMORRHAGE [None]
  - MESENTERIC FIBROSIS [None]
  - MUSCLE HYPERTROPHY [None]
  - NAUSEA [None]
  - PRESCRIBED OVERDOSE [None]
  - SCAR [None]
  - WEIGHT DECREASED [None]
